FAERS Safety Report 5517866-4 (Version None)
Quarter: 2007Q4

REPORT INFORMATION
  Report Type: 
  Country: None (occurrence: None)
  Receive Date: 20071113
  Receipt Date: 20071027
  Transmission Date: 20080405
  Serious: Yes (Other)
  Sender: FDA-Public Use
  Company Number: SPV1-2007-04756

PATIENT

DRUGS (1)
  1. VYVANSE(LISDEXAMFETAMINE DIMESYLATE) CAPSULE [Suspect]

REACTIONS (2)
  - DEPRESSION [None]
  - SUICIDAL IDEATION [None]
